FAERS Safety Report 24319910 (Version 1)
Quarter: 2024Q3

REPORT INFORMATION
  Report Type: Spontaneous
  Country: US (occurrence: US)
  Receive Date: 20240914
  Receipt Date: 20240914
  Transmission Date: 20241016
  Serious: Yes (Other)
  Sender: ABBVIE
  Company Number: US-ABBVIE-5917516

PATIENT
  Sex: Male

DRUGS (1)
  1. VIIBRYD [Suspect]
     Active Substance: VILAZODONE HYDROCHLORIDE
     Indication: Nightmare
     Dosage: FORM STRENGTH: 40 MILLIGRAM
     Route: 048

REACTIONS (11)
  - End stage renal disease [Unknown]
  - Off label use [Unknown]
  - Hypoaesthesia [Not Recovered/Not Resolved]
  - Blindness transient [Recovered/Resolved]
  - Burning sensation [Not Recovered/Not Resolved]
  - Cerebrovascular accident [Recovering/Resolving]
  - Aphonia [Unknown]
  - Gait inability [Unknown]
  - Dementia [Unknown]
  - Vertebral osteophyte [Unknown]
  - Muscle twitching [Not Recovered/Not Resolved]

NARRATIVE: CASE EVENT DATE: 20190101
